FAERS Safety Report 16291254 (Version 1)
Quarter: 2019Q2

REPORT INFORMATION
  Report Type: Spontaneous
  Country: US (occurrence: US)
  Receive Date: 20190509
  Receipt Date: 20190509
  Transmission Date: 20190711
  Serious: No
  Sender: FDA-Public Use
  Company Number: US-PFIZER INC-2019192515

PATIENT
  Age: 73 Year
  Sex: Female
  Weight: 63.5 kg

DRUGS (1)
  1. FLECTOR [Suspect]
     Active Substance: DICLOFENAC EPOLAMINE
     Indication: PAIN
     Dosage: UNK, AS NEEDED (APPLY TO THE AFFECTED AREA AS NEEDED)

REACTIONS (4)
  - Joint swelling [Unknown]
  - Skin discolouration [Unknown]
  - Intentional product misuse [Unknown]
  - Off label use [Unknown]
